FAERS Safety Report 18486459 (Version 1)
Quarter: 2020Q4

REPORT INFORMATION
  Report Type: Spontaneous
  Country: US (occurrence: US)
  Receive Date: 20201110
  Receipt Date: 20201110
  Transmission Date: 20210114
  Serious: Yes (Other)
  Sender: FDA-Public Use
  Company Number: None

PATIENT
  Age: 25 Year
  Sex: Male
  Weight: 81.65 kg

DRUGS (3)
  1. DAYTRANA PATCH 15 MG [Concomitant]
  2. METADATE CD 40 MG [Concomitant]
  3. DAYTRANA [Suspect]
     Active Substance: METHYLPHENIDATE
     Indication: ATTENTION DEFICIT HYPERACTIVITY DISORDER

REACTIONS (1)
  - Application site discolouration [None]

NARRATIVE: CASE EVENT DATE: 20201110
